FAERS Safety Report 8336806-6 (Version None)
Quarter: 2012Q2

REPORT INFORMATION
  Report Type: 
  Country: None (occurrence: None)
  Receive Date: 20120504
  Receipt Date: 20120426
  Transmission Date: 20120825
  Serious: Yes (Other)
  Sender: FDA-Public Use
  Company Number: MX-SANOFI-AVENTIS-2012SA029842

PATIENT
  Age: 59 Year
  Sex: Female
  Weight: 68 kg

DRUGS (7)
  1. PLAQUENIL [Suspect]
     Indication: RHEUMATOID ARTHRITIS
     Route: 048
     Dates: start: 20050101
  2. ACETAMINOPHEN [Suspect]
     Indication: INFLAMMATION
     Route: 048
     Dates: start: 20120419
  3. AZULFIDINE [Concomitant]
     Indication: RHEUMATOID ARTHRITIS
     Route: 048
     Dates: start: 20050101
  4. INDOMETHACIN [Concomitant]
     Indication: RHEUMATOID ARTHRITIS
     Dosage: STRENGTH: 2.5 G
     Route: 061
     Dates: start: 20050101
  5. ARAVA [Suspect]
     Indication: RHEUMATOID ARTHRITIS
     Route: 048
     Dates: start: 20050101, end: 20120412
  6. DICLOFENAC [Concomitant]
     Indication: RHEUMATOID ARTHRITIS
     Route: 048
     Dates: start: 20050101
  7. ACETAMINOPHEN [Suspect]
     Route: 048
     Dates: start: 20120201

REACTIONS (6)
  - BODY TEMPERATURE INCREASED [None]
  - EPISTAXIS [None]
  - INFLAMMATION [None]
  - WEIGHT INCREASED [None]
  - ERYTHEMA [None]
  - PAIN [None]
